FAERS Safety Report 19008890 (Version 2)
Quarter: 2021Q2

REPORT INFORMATION
  Report Type: Spontaneous
  Country: JP (occurrence: JP)
  Receive Date: 20210315
  Receipt Date: 20210420
  Transmission Date: 20210717
  Serious: Yes (Other)
  Sender: FDA-Public Use
  Company Number: JP-BRISTOL-MYERS SQUIBB COMPANY-BMS-2021-025047

PATIENT
  Age: 74 Year
  Sex: Female

DRUGS (4)
  1. CARBOPLATIN. [Concomitant]
     Active Substance: CARBOPLATIN
     Indication: GINGIVAL CANCER
     Dosage: UNK
     Route: 041
  2. PACLITAXEL. [Concomitant]
     Active Substance: PACLITAXEL
     Indication: GINGIVAL CANCER
     Dosage: UNK
     Route: 041
  3. OPDIVO [Suspect]
     Active Substance: NIVOLUMAB
     Indication: HEAD AND NECK CANCER
     Dosage: UNK
     Route: 041
  4. CETUXIMAB(GENETICAL RECOMBINATION) [Concomitant]
     Indication: GINGIVAL CANCER
     Dosage: UNK
     Route: 041

REACTIONS (1)
  - Pneumothorax spontaneous [Unknown]
